FAERS Safety Report 12134426 (Version 1)
Quarter: 2016Q1

REPORT INFORMATION
  Report Type: Spontaneous
  Country: CN (occurrence: CN)
  Receive Date: 20160301
  Receipt Date: 20160301
  Transmission Date: 20160526
  Serious: Yes (Hospitalization)
  Sender: FDA-Public Use
  Company Number: CN-ELI_LILLY_AND_COMPANY-CN201602007263

PATIENT
  Age: 21 Year
  Sex: Female
  Weight: 46 kg

DRUGS (2)
  1. HUMALOG [Suspect]
     Active Substance: INSULIN LISPRO
     Indication: DIABETES MELLITUS
     Dosage: 5 U, TID
     Route: 058
     Dates: start: 201402
  2. BASALIN [Concomitant]

REACTIONS (1)
  - Ketosis [Not Recovered/Not Resolved]

NARRATIVE: CASE EVENT DATE: 20160214
